FAERS Safety Report 9435227 (Version 1)
Quarter: 2013Q3

REPORT INFORMATION
  Report Type: Spontaneous
  Country: US (occurrence: US)
  Receive Date: 20130801
  Receipt Date: 20130801
  Transmission Date: 20140515
  Serious: No
  Sender: FDA-Public Use
  Company Number: US-US-EMD SERONO, INC.-7070309

PATIENT
  Sex: Female
  Weight: 54 kg

DRUGS (1)
  1. REBIF [Suspect]
     Indication: MULTIPLE SCLEROSIS
     Route: 058
     Dates: start: 20100828

REACTIONS (3)
  - Nasopharyngitis [Unknown]
  - White blood cell count decreased [Recovered/Resolved]
  - Fatigue [Unknown]
